FAERS Safety Report 5113413-X (Version None)
Quarter: 2006Q3

REPORT INFORMATION
  Report Type: 
  Country: None (occurrence: None)
  Receive Date: 20060920
  Receipt Date: 20060912
  Transmission Date: 20061208
  Serious: Yes (Other)
  Sender: FDA-Public Use
  Company Number: 2006110340

PATIENT
  Sex: Female

DRUGS (1)
  1. MINOXIDIL [Suspect]
     Indication: ALOPECIA
     Dosage: 50 MG BID, TOPICAL
     Route: 061
     Dates: start: 20060906, end: 20060911

REACTIONS (6)
  - ANGIONEUROTIC OEDEMA [None]
  - ERYTHEMA [None]
  - RASH VESICULAR [None]
  - SKIN BURNING SENSATION [None]
  - SKIN IRRITATION [None]
  - SKIN OEDEMA [None]
